FAERS Safety Report 13103837 (Version 1)
Quarter: 2017Q1

REPORT INFORMATION
  Report Type: Report from Study
  Country: US (occurrence: US)
  Receive Date: 20170111
  Receipt Date: 20170111
  Transmission Date: 20170428
  Serious: Yes (Other)
  Sender: FDA-Public Use
  Company Number: US-ROCHE-1875560

PATIENT
  Age: 45 Year
  Sex: Female
  Weight: 69.92 kg

DRUGS (9)
  1. XOLAIR [Suspect]
     Active Substance: OMALIZUMAB
     Dosage: YES
     Route: 058
     Dates: start: 201610
  2. TORADOL [Concomitant]
     Active Substance: KETOROLAC TROMETHAMINE
     Dosage: GIVEN AT DOCTOR^S OFFICE FOR SEVERE PAIN ;ONGOING: YES
     Route: 065
  3. XYZAL [Concomitant]
     Active Substance: LEVOCETIRIZINE DIHYDROCHLORIDE
     Indication: HYPERSENSITIVITY
     Dosage: ONGOING:YES
     Route: 048
  4. PREDNISONE. [Concomitant]
     Active Substance: PREDNISONE
     Dosage: NO
     Route: 048
     Dates: start: 201607, end: 201610
  5. PROVENTIL [Concomitant]
     Active Substance: ALBUTEROL
     Dosage: AS NEEDED ;ONGOING: YES
     Route: 055
  6. TORADOL [Concomitant]
     Active Substance: KETOROLAC TROMETHAMINE
     Dosage: YES
     Route: 048
  7. PREDNISONE. [Concomitant]
     Active Substance: PREDNISONE
     Dosage: 6 DAYS A WEEK ;ONGOING: NO
     Route: 065
  8. XOLAIR [Suspect]
     Active Substance: OMALIZUMAB
     Indication: ASTHMA
     Dosage: 3 SHOTS INTO ARMS EVERY TWO WEEKS ;ONGOING: NO
     Route: 058
     Dates: start: 20110713, end: 201604
  9. CELEBREX [Concomitant]
     Active Substance: CELECOXIB
     Dosage: YES
     Route: 048

REACTIONS (12)
  - Laceration [Unknown]
  - Traumatic lung injury [Unknown]
  - Cartilage injury [Not Recovered/Not Resolved]
  - Facial bones fracture [Unknown]
  - Loss of consciousness [Recovered/Resolved]
  - Dyspnoea [Recovered/Resolved]
  - Chest pain [Recovered/Resolved]
  - Fall [Unknown]
  - Concussion [Unknown]
  - Drug ineffective [Unknown]
  - Rib fracture [Unknown]
  - Hypoxia [Unknown]

NARRATIVE: CASE EVENT DATE: 201611
